FAERS Safety Report 11184046 (Version 1)
Quarter: 2015Q2

REPORT INFORMATION
  Report Type: Spontaneous
  Country: US (occurrence: US)
  Receive Date: 20150612
  Receipt Date: 20150612
  Transmission Date: 20150821
  Serious: Yes (Hospitalization, Other)
  Sender: FDA-Public Use
  Company Number: US-JNJFOC-20150607954

PATIENT

DRUGS (2)
  1. LOCAL HAEMOSTATICS [Concomitant]
     Active Substance: UNSPECIFIED INGREDIENT
     Indication: HAEMOSTASIS
     Route: 065
  2. FIBRIN SEALANTS [Suspect]
     Active Substance: FIBRIN SEALANT
     Indication: HAEMOSTASIS
     Route: 065

REACTIONS (3)
  - Hospitalisation [Unknown]
  - Post procedural complication [Unknown]
  - Post procedural haemorrhage [Unknown]
